FAERS Safety Report 23631833 (Version 1)
Quarter: 2024Q1

REPORT INFORMATION
  Report Type: Spontaneous
  Country: TW (occurrence: TW)
  Receive Date: 20240314
  Receipt Date: 20240314
  Transmission Date: 20240409
  Serious: Yes (Hospitalization, Other)
  Sender: FDA-Public Use
  Company Number: TW-PFIZER INC-PV202400033804

PATIENT
  Age: 68 Year
  Sex: Female

DRUGS (6)
  1. PALBOCICLIB [Suspect]
     Active Substance: PALBOCICLIB
     Indication: HER2 positive breast cancer
     Dosage: 125 MG, DAILY, FOR 3 WEEKS FOLLOWED BY 1 WEEK OFF
     Dates: start: 20200401
  2. PALBOCICLIB [Suspect]
     Active Substance: PALBOCICLIB
     Dosage: 75 MG, DAILY
  3. ZOLEDRONIC ACID [Concomitant]
     Active Substance: ZOLEDRONIC ACID
     Indication: HER2 positive breast cancer
     Dosage: 4 MG
  4. ZOLEDRONIC ACID [Concomitant]
     Active Substance: ZOLEDRONIC ACID
     Dosage: 16 MG QM
     Dates: start: 2021
  5. FULVESTRANT [Concomitant]
     Active Substance: FULVESTRANT
     Indication: HER2 positive breast cancer
     Dosage: UNK, CYCLIC
  6. ROSUVASTATIN [Concomitant]
     Active Substance: ROSUVASTATIN
     Indication: HER2 positive breast cancer
     Dosage: UNK

REACTIONS (6)
  - Nephropathy toxic [Recovering/Resolving]
  - Acute kidney injury [Recovering/Resolving]
  - Renal tubular acidosis [Recovering/Resolving]
  - Renal tubular dysfunction [Recovering/Resolving]
  - Renal tubular injury [Recovering/Resolving]
  - Fanconi syndrome [Recovering/Resolving]
